FAERS Safety Report 21290039 (Version 1)
Quarter: 2022Q3

REPORT INFORMATION
  Report Type: Spontaneous
  Country: US (occurrence: US)
  Receive Date: 20220902
  Receipt Date: 20220902
  Transmission Date: 20221027
  Serious: No
  Sender: FDA-Public Use
  Company Number: US-KOWA-22US000861

PATIENT
  Sex: Female

DRUGS (2)
  1. LIVALO [Suspect]
     Active Substance: PITAVASTATIN CALCIUM
     Indication: Product used for unknown indication
     Dosage: 4 MG
     Dates: start: 202202
  2. LIVALO [Suspect]
     Active Substance: PITAVASTATIN CALCIUM
     Dosage: 2 MG

REACTIONS (5)
  - Limb discomfort [Unknown]
  - Limb discomfort [Unknown]
  - Chills [Unknown]
  - Feeling cold [Unknown]
  - Joint stiffness [Unknown]
